FAERS Safety Report 24385094 (Version 1)
Quarter: 2024Q4

REPORT INFORMATION
  Report Type: Spontaneous
  Country: US (occurrence: US)
  Receive Date: 20241001
  Receipt Date: 20241001
  Transmission Date: 20250115
  Serious: Yes (Hospitalization)
  Sender: BAXTER
  Company Number: US-BAXTER-2024BAX025272

PATIENT
  Age: 57 Year
  Sex: Female

DRUGS (3)
  1. METOPROLOL TARTRATE [Suspect]
     Active Substance: METOPROLOL TARTRATE
     Dosage: TAKING IN EVENING
     Route: 065
  2. VERAPAMIL [Suspect]
     Active Substance: VERAPAMIL HYDROCHLORIDE
     Dosage: TAKING IN EVENING
     Route: 065
  3. LISINOPRIL [Concomitant]
     Active Substance: LISINOPRIL
     Dosage: IN THE MORNING
     Route: 065

REACTIONS (2)
  - Chest pain [Unknown]
  - Dyspnoea [Unknown]
